FAERS Safety Report 9107252 (Version 1)
Quarter: 2013Q1

REPORT INFORMATION
  Report Type: Report from Study
  Country: FR (occurrence: FR)
  Receive Date: 20130221
  Receipt Date: 20130221
  Transmission Date: 20140127
  Serious: Yes (Hospitalization)
  Sender: FDA-Public Use
  Company Number: FR-BRISTOL-MYERS SQUIBB COMPANY-15905805

PATIENT
  Age: 63 Year
  Sex: Male

DRUGS (1)
  1. IPILIMUMAB [Suspect]
     Indication: PROSTATE CANCER
     Dosage: 3360 MG TOTAL DOSE
     Route: 042
     Dates: start: 20110412, end: 20110616

REACTIONS (2)
  - Gastritis atrophic [Recovered/Resolved]
  - Nausea [Recovered/Resolved]
